FAERS Safety Report 24114219 (Version 2)
Quarter: 2024Q4

REPORT INFORMATION
  Report Type: Report from Study
  Country: BR (occurrence: BR)
  Receive Date: 20240720
  Receipt Date: 20241206
  Transmission Date: 20250115
  Serious: Yes (Hospitalization)
  Sender: TAKEDA
  Company Number: BR-TAKEDA-2024TUS015492

PATIENT
  Age: 56 Year
  Sex: Female

DRUGS (3)
  1. VEDOLIZUMAB [Suspect]
     Active Substance: VEDOLIZUMAB
     Indication: Colitis ulcerative
     Dosage: 300 MILLIGRAM
  2. MESALAMINE [Suspect]
     Active Substance: MESALAMINE
     Indication: Colitis ulcerative
     Dosage: UNK, BID
     Dates: start: 2011
  3. MESALAMINE [Suspect]
     Active Substance: MESALAMINE
     Dosage: UNK, BID
     Dates: start: 2022

REACTIONS (5)
  - Adverse event [Recovered/Resolved]
  - Mucous stools [Recovering/Resolving]
  - Diarrhoea [Recovering/Resolving]
  - Inappropriate schedule of product administration [Unknown]
  - Product availability issue [Unknown]

NARRATIVE: CASE EVENT DATE: 20111201
